FAERS Safety Report 16116580 (Version 1)
Quarter: 2019Q1

REPORT INFORMATION
  Report Type: Spontaneous
  Country: US (occurrence: US)
  Receive Date: 20190221
  Receipt Date: 20190221
  Transmission Date: 20190418
  Serious: No
  Sender: FDA-Public Use
  Company Number: None

PATIENT
  Age: 72 Year
  Sex: Female
  Weight: 108.86 kg

DRUGS (9)
  1. NOVOLOG [Suspect]
     Active Substance: INSULIN ASPART
     Indication: DIABETES MELLITUS
     Dosage: ?          OTHER STRENGTH:100 UNITS/ML;QUANTITY:6 UNITS IN 3ML PEN;OTHER ROUTE:INJECTION?
     Dates: start: 20171227, end: 20190131
  2. SYNTHROID [Concomitant]
     Active Substance: LEVOTHYROXINE SODIUM
  3. ALIVE [Concomitant]
  4. LEVEMIR FLEX TOUCH PEN [Concomitant]
  5. COQ10 [Concomitant]
     Active Substance: UBIDECARENONE
  6. IB GARD [Concomitant]
  7. CIRCULATORY HEALTH FORMULA [Concomitant]
  8. MILK THISTLE [Concomitant]
     Active Substance: DIETARY SUPPLEMENT\HERBALS\MILK THISTLE
  9. LOSARTAN 50MG [Concomitant]
     Active Substance: LOSARTAN

REACTIONS (4)
  - Feeling abnormal [None]
  - Dizziness [None]
  - Muscle spasms [None]
  - Middle insomnia [None]

NARRATIVE: CASE EVENT DATE: 20171227
